FAERS Safety Report 14457354 (Version 1)
Quarter: 2018Q1

REPORT INFORMATION
  Report Type: Spontaneous
  Country: DE (occurrence: DE)
  Receive Date: 20180130
  Receipt Date: 20180130
  Transmission Date: 20180509
  Serious: Yes (Other)
  Sender: FDA-Public Use
  Company Number: DE-AUROBINDO-AUR-APL-2018-003186

PATIENT
  Age: 38 Year
  Sex: Male

DRUGS (4)
  1. PAROXETINE. [Suspect]
     Active Substance: PAROXETINE
     Indication: PRODUCT USED FOR UNKNOWN INDICATION
     Dosage: 50 MG, ONCE A DAY
     Route: 048
     Dates: start: 20170412, end: 20170419
  2. PAROXETINE. [Suspect]
     Active Substance: PAROXETINE
     Dosage: 60 MG, ONCE A DAY
     Route: 048
     Dates: start: 20170420, end: 20170424
  3. PAROXETINE. [Suspect]
     Active Substance: PAROXETINE
     Dosage: UNK
  4. PAROXETINE. [Suspect]
     Active Substance: PAROXETINE
     Dosage: 70 MG, ONCE A DAY
     Route: 048
     Dates: start: 20170425, end: 20170503

REACTIONS (1)
  - Ejaculation disorder [Recovered/Resolved]

NARRATIVE: CASE EVENT DATE: 20170426
